FAERS Safety Report 4666269-3 (Version None)
Quarter: 2005Q2

REPORT INFORMATION
  Report Type: 
  Country: None (occurrence: None)
  Receive Date: 20050518
  Receipt Date: 20050518
  Transmission Date: 20051028
  Serious: Yes (Life-Threatening, Disabling)
  Sender: FDA-Public Use
  Company Number: None

PATIENT
  Sex: Female
  Weight: 49.4421 kg

DRUGS (2)
  1. DURAGESIC PATCH (GENERIC) [Suspect]
     Indication: OSTEOARTHRITIS
     Dosage: 2.5 MCG EVERY 2 DAYS
  2. DURAGESIC PATCH (GENERIC) [Suspect]
     Indication: PANCREATITIS CHRONIC
     Dosage: 2.5 MCG EVERY 2 DAYS

REACTIONS (2)
  - CONDITION AGGRAVATED [None]
  - PAIN [None]
